FAERS Safety Report 5734865-8 (Version None)
Quarter: 2008Q2

REPORT INFORMATION
  Report Type: 
  Country: None (occurrence: None)
  Receive Date: 20080512
  Receipt Date: 20080507
  Transmission Date: 20081010
  Serious: Yes (Other)
  Sender: FDA-Public Use
  Company Number: A0726785A

PATIENT
  Age: 4 Year
  Sex: Male

DRUGS (2)
  1. LAMICTAL [Suspect]
     Dosage: 25MG VARIABLE DOSE
     Route: 048
     Dates: start: 20060101, end: 20080411
  2. NO CONCURRENT MEDICATION [Concomitant]

REACTIONS (8)
  - ANGER [None]
  - ANXIETY [None]
  - DEPRESSED LEVEL OF CONSCIOUSNESS [None]
  - DISTURBANCE IN ATTENTION [None]
  - FEBRILE CONVULSION [None]
  - INSOMNIA [None]
  - NIGHTMARE [None]
  - SOMNAMBULISM [None]
